FAERS Safety Report 23363493 (Version 1)
Quarter: 2024Q1

REPORT INFORMATION
  Report Type: Spontaneous
  Country: US (occurrence: US)
  Receive Date: 20240103
  Receipt Date: 20240103
  Transmission Date: 20240410
  Serious: No
  Sender: FDA-Public Use
  Company Number: US-VISTAPHARM-2023-US-033851

PATIENT
  Age: 81 Year
  Sex: Female
  Weight: 81.19 kg

DRUGS (2)
  1. SUCRALFATE ORAL SUSPENSION [Suspect]
     Active Substance: SUCRALFATE
     Indication: Abdominal pain upper
     Dosage: 20ML 2-4 TIMES A DAY PER ORAL
     Route: 048
     Dates: start: 20230825, end: 20231014
  2. XANAX [Concomitant]
     Active Substance: ALPRAZOLAM
     Route: 048

REACTIONS (1)
  - Headache [Recovered/Resolved]

NARRATIVE: CASE EVENT DATE: 20231013
